FAERS Safety Report 25189326 (Version 1)
Quarter: 2025Q2

REPORT INFORMATION
  Report Type: Spontaneous
  Country: US (occurrence: US)
  Receive Date: 20250411
  Receipt Date: 20250411
  Transmission Date: 20250716
  Serious: Yes (Other)
  Sender: CHEPLAPHARM
  Company Number: US-ROCHE-10000190265

PATIENT
  Sex: Female

DRUGS (3)
  1. CAPECITABINE [Suspect]
     Active Substance: CAPECITABINE
     Indication: Product used for unknown indication
  2. TUKYSA [Suspect]
     Active Substance: TUCATINIB
     Route: 048
     Dates: start: 20241227
  3. TUKYSA [Suspect]
     Active Substance: TUCATINIB
     Route: 048
     Dates: start: 20241227

REACTIONS (6)
  - Seizure [Unknown]
  - Product dose omission issue [Unknown]
  - Alopecia [Unknown]
  - Vomiting [Unknown]
  - Diarrhoea [Unknown]
  - Hepatic enzyme increased [Unknown]
